FAERS Safety Report 8421041-3 (Version None)
Quarter: 2012Q2

REPORT INFORMATION
  Report Type: 
  Country: None (occurrence: None)
  Receive Date: 20120608
  Receipt Date: 20120601
  Transmission Date: 20120825
  Serious: Yes (Hospitalization)
  Sender: FDA-Public Use
  Company Number: US-BAYER-2012-019497

PATIENT
  Age: 27 Year
  Sex: Female
  Weight: 89.796 kg

DRUGS (7)
  1. NAPROXEN [Concomitant]
     Dosage: 500 MG,TABLET
     Dates: start: 20110928
  2. CYCLOBENZAPRINE [Concomitant]
     Dosage: 5 MG, TID
     Route: 048
     Dates: start: 20111005
  3. YASMIN [Suspect]
     Dosage: UNK
     Dates: start: 20070101
  4. FLUCONAZOLE [Concomitant]
     Dosage: 150 MG, UNK
     Dates: start: 20110708
  5. YAZ [Suspect]
     Dosage: UNK
     Dates: start: 20070101
  6. KETOROLAC TROMETHAMINE [Concomitant]
     Dosage: 10 MG,TABLET
     Dates: start: 20111005
  7. FLUCONAZOLE [Concomitant]
     Dosage: 150 MG, UNK
     Dates: start: 20110927

REACTIONS (2)
  - PAIN [None]
  - PULMONARY EMBOLISM [None]
